FAERS Safety Report 7942500-3 (Version None)
Quarter: 2011Q4

REPORT INFORMATION
  Report Type: 
  Country: None (occurrence: None)
  Receive Date: 20111128
  Receipt Date: 20111004
  Transmission Date: 20120403
  Serious: Yes (Hospitalization)
  Sender: FDA-Public Use
  Company Number: JP-GLAXOSMITHKLINE-B0753529A

PATIENT
  Sex: Male

DRUGS (4)
  1. CLONAZEPAM [Concomitant]
     Dosage: 3MG PER DAY
     Route: 048
  2. SEROQUEL [Concomitant]
     Dosage: 550MG PER DAY
     Route: 048
  3. LAMICTAL [Suspect]
     Indication: BIPOLAR DISORDER
     Dosage: 25MG ALTERNATE DAYS
     Route: 048
     Dates: start: 20110823, end: 20110914
  4. DEPAKENE [Concomitant]
     Indication: BIPOLAR DISORDER
     Dosage: 800MG PER DAY
     Route: 048

REACTIONS (7)
  - DRUG ERUPTION [None]
  - LIVER DISORDER [None]
  - BLOOD LACTATE DEHYDROGENASE INCREASED [None]
  - ALANINE AMINOTRANSFERASE INCREASED [None]
  - PYREXIA [None]
  - RASH [None]
  - ASPARTATE AMINOTRANSFERASE INCREASED [None]
